FAERS Safety Report 13174381 (Version 6)
Quarter: 2017Q4

REPORT INFORMATION
  Report Type: Spontaneous
  Country: JP (occurrence: JP)
  Receive Date: 20170201
  Receipt Date: 20171101
  Transmission Date: 20180320
  Serious: Yes (Death, Hospitalization, Disabling, Other)
  Sender: FDA-Public Use
  Company Number: JP-CELGENEUS-JPN-2017017666

PATIENT
  Age: 66 Year
  Sex: Male
  Weight: 74 kg

DRUGS (9)
  1. GEMCITABINE [Suspect]
     Active Substance: GEMCITABINE\GEMCITABINE HYDROCHLORIDE
     Indication: PANCREATIC NEUROENDOCRINE TUMOUR METASTATIC
     Dosage: 1800 MILLIGRAM
     Route: 041
     Dates: start: 20161014, end: 2016
  2. ABRAXANE [Suspect]
     Active Substance: PACLITAXEL
     Indication: PANCREATIC NEUROENDOCRINE TUMOUR METASTATIC
     Dosage: 220 MILLIGRAM
     Route: 041
     Dates: start: 20161014, end: 2016
  3. SODIUM RABEPRAZOLE [Concomitant]
     Active Substance: RABEPRAZOLE SODIUM
     Indication: GASTROOESOPHAGEAL REFLUX DISEASE
     Dosage: 10 MILLIGRAM
     Route: 048
     Dates: start: 20160305, end: 20170310
  4. REBAMIPIDE [Concomitant]
     Active Substance: REBAMIPIDE
     Indication: CHRONIC GASTRITIS
     Dosage: 300 MILLIGRAM
     Route: 048
     Dates: start: 20160305, end: 20170310
  5. ABRAXANE [Suspect]
     Active Substance: PACLITAXEL
     Dosage: 180 MILLIGRAM
     Route: 041
     Dates: start: 2016, end: 20170104
  6. ROZEREM [Concomitant]
     Active Substance: RAMELTEON
     Indication: INSOMNIA
     Dosage: 8 MILLIGRAM
     Route: 048
     Dates: start: 20160305, end: 20170310
  7. CELECOXIB. [Concomitant]
     Active Substance: CELECOXIB
     Indication: ARTHRALGIA
     Dosage: 200 MILLIGRAM
     Route: 048
     Dates: start: 20160305, end: 20170310
  8. GEMCITABINE [Suspect]
     Active Substance: GEMCITABINE\GEMCITABINE HYDROCHLORIDE
     Dosage: 1400 MILLIGRAM
     Route: 041
     Dates: start: 2016, end: 20170104
  9. MIRTAZAPINE. [Concomitant]
     Active Substance: MIRTAZAPINE
     Indication: INSOMNIA
     Dosage: 15 MILLIGRAM
     Route: 048
     Dates: start: 20160305, end: 20170310

REACTIONS (5)
  - Bone marrow failure [Unknown]
  - Renal impairment [Not Recovered/Not Resolved]
  - Diarrhoea [Recovering/Resolving]
  - Drug-induced liver injury [Fatal]
  - Pneumonia aspiration [Fatal]

NARRATIVE: CASE EVENT DATE: 20170113
